FAERS Safety Report 15140576 (Version 1)
Quarter: 2018Q3

REPORT INFORMATION
  Report Type: Spontaneous
  Country: ES (occurrence: ES)
  Receive Date: 20180713
  Receipt Date: 20180713
  Transmission Date: 20181010
  Serious: Yes (Death, Hospitalization)
  Sender: FDA-Public Use
  Company Number: ES-BAYER-2018-132357

PATIENT
  Age: 81 Year
  Sex: Male
  Weight: 88 kg

DRUGS (2)
  1. ENOXAPARIN SODIUM. [Interacting]
     Active Substance: ENOXAPARIN SODIUM
     Indication: ACUTE MYOCARDIAL INFARCTION
     Dosage: 80 MG, BID
     Route: 058
     Dates: start: 20170413, end: 20170417
  2. ACETYLSALICYLIC ACID({=100 MG) [Suspect]
     Active Substance: ASPIRIN
     Indication: ACUTE MYOCARDIAL INFARCTION
     Dosage: UNK
     Route: 048

REACTIONS (1)
  - Abdominal wall haematoma [Fatal]

NARRATIVE: CASE EVENT DATE: 20170415
